FAERS Safety Report 5213133-7 (Version None)
Quarter: 2007Q1

REPORT INFORMATION
  Report Type: 
  Country: None (occurrence: None)
  Receive Date: 20070118
  Receipt Date: 20070118
  Transmission Date: 20070707
  Serious: No
  Sender: FDA-Public Use
  Company Number: None

PATIENT

DRUGS (2)
  1. TOPOTECAN 3 MG/M2 [Suspect]
     Indication: VAGINAL CANCER
     Dosage: 3MG/M2  D 1, 8, 15 Q28  IV
     Route: 042
     Dates: start: 20061221
  2. PS-341  1.3MG/M2 [Suspect]
     Indication: VAGINAL CANCER
     Dosage: 1.6MG/M2  D 1, 8, 15 Q28
     Route: 042
     Dates: start: 20061221

REACTIONS (2)
  - BLOOD SODIUM DECREASED [None]
  - LETHARGY [None]
